FAERS Safety Report 5202424-1 (Version None)
Quarter: 2007Q1

REPORT INFORMATION
  Report Type: 
  Country: None (occurrence: None)
  Receive Date: 20070109
  Receipt Date: 20070104
  Transmission Date: 20070707
  Serious: Yes (Hospitalization, Other)
  Sender: FDA-Public Use
  Company Number: US-PURDUE-USA_2006_0025715

PATIENT
  Sex: Female

DRUGS (1)
  1. OXYCONTIN [Suspect]
     Indication: PAIN MANAGEMENT
     Dosage: UNK, SEE TEXT

REACTIONS (3)
  - INTENTIONAL DRUG MISUSE [None]
  - MENTAL DISORDER [None]
  - SUICIDE ATTEMPT [None]
